FAERS Safety Report 19730110 (Version 2)
Quarter: 2021Q3

REPORT INFORMATION
  Report Type: Spontaneous
  Country: SV (occurrence: SV)
  Receive Date: 20210821
  Receipt Date: 20210911
  Transmission Date: 20211014
  Serious: Yes (Death, Life-Threatening, Hospitalization)
  Sender: FDA-Public Use
  Company Number: NVSC2021SV189544

PATIENT
  Weight: 40 kg

DRUGS (2)
  1. GLIVEC [Suspect]
     Active Substance: IMATINIB MESYLATE
     Indication: GASTROINTESTINAL STROMAL TUMOUR
     Dosage: 600 MG (400 MG X 1 AND 2 X 100 MG)
     Route: 065
  2. GLIVEC [Suspect]
     Active Substance: IMATINIB MESYLATE
     Dosage: 600 MG, QD
     Route: 048
     Dates: start: 202009, end: 202108

REACTIONS (3)
  - COVID-19 [Fatal]
  - Respiratory failure [Fatal]
  - Dyspnoea [Unknown]
